FAERS Safety Report 22636680 (Version 1)
Quarter: 2023Q2

REPORT INFORMATION
  Report Type: Spontaneous
  Country: JP (occurrence: JP)
  Receive Date: 20230623
  Receipt Date: 20230623
  Transmission Date: 20230721
  Serious: Yes (Other)
  Sender: FDA-Public Use
  Company Number: JP-ANIPHARMA-2023-JP-000230

PATIENT
  Age: 6 Month
  Sex: Male

DRUGS (8)
  1. CORTICOTROPIN [Suspect]
     Active Substance: CORTICOTROPIN
     Indication: Infantile spasms
     Dosage: 0.014 MG/KG DAILY
     Route: 030
  2. CLONAZEPAM [Concomitant]
     Active Substance: CLONAZEPAM
     Dosage: 0.08 MG/KG DAILY
  3. BIOTIN [Concomitant]
     Active Substance: BIOTIN
     Dosage: 0.5 MG/KG DAILY
  4. COENZYME Q10 [Concomitant]
     Active Substance: DIETARY SUPPLEMENT\UBIDECARENONE
     Dosage: 5 MG/KG DAILY
  5. THIAMINE [Concomitant]
     Active Substance: THIAMINE
     Dosage: 10 MG/KG DAILY
  6. VITAMIN C [Concomitant]
     Active Substance: ASCORBIC ACID
     Dosage: 100 MG/KG DAILY
  7. VITAMIN E [Concomitant]
     Active Substance: .ALPHA.-TOCOPHEROL
     Dosage: 10 MG/KG DAILY
  8. LEVOCARNITINE [Concomitant]
     Active Substance: LEVOCARNITINE
     Dosage: 30 MG/KG DAILY

REACTIONS (1)
  - Status dystonicus [Recovered/Resolved]
